FAERS Safety Report 4277634-0 (Version None)
Quarter: 2004Q1

REPORT INFORMATION
  Report Type: 
  Country: None (occurrence: None)
  Receive Date: 20040121
  Receipt Date: 20040115
  Transmission Date: 20041129
  Serious: Yes (Death)
  Sender: FDA-Public Use
  Company Number: KII-1998-0006204

PATIENT
  Sex: Male

DRUGS (1)
  1. OXYCONTIN [Suspect]
     Indication: PAIN
     Dosage: DAILY

REACTIONS (3)
  - CONDITION AGGRAVATED [None]
  - DRUG ABUSER [None]
  - LUNG NEOPLASM MALIGNANT [None]
